FAERS Safety Report 22066840 (Version 1)
Quarter: 2023Q1

REPORT INFORMATION
  Report Type: Spontaneous
  Country: None (occurrence: US)
  Receive Date: 20230306
  Receipt Date: 20230306
  Transmission Date: 20230418
  Serious: No
  Sender: FDA-Public Use
  Company Number: US-Mission Pharmacal Company-2138744

PATIENT
  Age: 63 Year
  Sex: Male

DRUGS (2)
  1. POTASSIUM CITRATE [Suspect]
     Active Substance: POTASSIUM CITRATE
     Indication: Nephrolithiasis
     Route: 048
  2. THIOLA EC [Concomitant]
     Active Substance: TIOPRONIN
     Route: 048
     Dates: start: 20191018

REACTIONS (1)
  - Hyponatraemia [Recovered/Resolved]
